FAERS Safety Report 6217103-1 (Version None)
Quarter: 2009Q2

REPORT INFORMATION
  Report Type: 
  Country: None (occurrence: None)
  Receive Date: 20090606
  Receipt Date: 20090522
  Transmission Date: 20091009
  Serious: Yes (Hospitalization)
  Sender: FDA-Public Use
  Company Number: US-PFIZER INC-2009222423

PATIENT
  Age: 71 Year
  Sex: Female
  Weight: 49.9 kg

DRUGS (1)
  1. ATGAM [Suspect]
     Indication: APLASTIC ANAEMIA
     Dosage: 750 MG FOR 10 DAYS
     Dates: start: 20081001, end: 20080101

REACTIONS (1)
  - APLASTIC ANAEMIA [None]
